FAERS Safety Report 6252136-0 (Version None)
Quarter: 2009Q2

REPORT INFORMATION
  Report Type: 
  Country: None (occurrence: None)
  Receive Date: 20090630
  Receipt Date: 20061027
  Transmission Date: 20091009
  Serious: Yes (Hospitalization)
  Sender: FDA-Public Use
  Company Number: US-ROCHE-639112

PATIENT
  Sex: Female

DRUGS (13)
  1. ENFUVIRTIDE [Suspect]
     Route: 065
     Dates: start: 20040928, end: 20080814
  2. NORVIR [Concomitant]
     Dosage: FREQUENCY REPORTED AS QD
     Dates: start: 20040409, end: 20080814
  3. REYATAZ [Concomitant]
     Dosage: FREQUENCY REPORTED AS QD
     Dates: start: 20040409, end: 20080814
  4. VIDEX [Concomitant]
     Dosage: FREQUENCY REPORTED AS QD
     Dates: start: 20040409, end: 20061013
  5. VIREAD [Concomitant]
     Dosage: FREQUENCY REPORTED AS QD
     Dates: start: 20040409, end: 20061013
  6. EMTRIVA [Concomitant]
     Dosage: FREQUENCY REPORTED AS QD
     Dates: start: 20061013, end: 20080814
  7. LEVAQUIN [Concomitant]
     Dosage: FREQUENCY REPORTED AS QD
     Dates: start: 20041216, end: 20050317
  8. AUGMENTIN [Concomitant]
     Dates: start: 20050217, end: 20050317
  9. FLUCONAZOLE [Concomitant]
     Dosage: FREQUENCY REPORTED AS QD
     Dates: start: 20050830, end: 20070824
  10. SEPTRA [Concomitant]
     Dates: start: 20050830, end: 20070824
  11. VANCOMYCIN [Concomitant]
     Dates: start: 20051205, end: 20051213
  12. ZITHROMAX [Concomitant]
     Dates: start: 20051205, end: 20080814
  13. CIPRO [Concomitant]
     Dates: start: 20061027, end: 20061105

REACTIONS (7)
  - ACQUIRED IMMUNODEFICIENCY SYNDROME [None]
  - ANAEMIA [None]
  - DIARRHOEA [None]
  - HIV INFECTION [None]
  - RENAL FAILURE ACUTE [None]
  - SUBCUTANEOUS ABSCESS [None]
  - URINARY TRACT INFECTION [None]
